FAERS Safety Report 5031119-2 (Version None)
Quarter: 2006Q2

REPORT INFORMATION
  Report Type: 
  Country: None (occurrence: None)
  Receive Date: 20060619
  Receipt Date: 20060619
  Transmission Date: 20061013
  Serious: Yes (Hospitalization)
  Sender: FDA-Public Use
  Company Number: None

PATIENT
  Age: 55 Year
  Sex: Female
  Weight: 84.369 kg

DRUGS (5)
  1. TARCEVA [Suspect]
     Indication: LARYNGEAL CANCER
     Dosage: 150 MG ORALLY DAILY
     Route: 048
     Dates: start: 20060606
  2. TARCEVA [Suspect]
     Indication: SQUAMOUS CELL CARCINOMA
     Dosage: 150 MG ORALLY DAILY
     Route: 048
     Dates: start: 20060606
  3. CISPLATIN [Concomitant]
  4. SODIUM THIOSULFATE [Concomitant]
  5. RADIATION THERAPY [Concomitant]

REACTIONS (12)
  - AFFECTIVE DISORDER [None]
  - ANXIETY [None]
  - BACTERIAL INFECTION [None]
  - BLOOD PRESSURE SYSTOLIC INCREASED [None]
  - DIARRHOEA [None]
  - HAEMATURIA [None]
  - MIGRAINE [None]
  - NAUSEA [None]
  - RESPIRATORY RATE INCREASED [None]
  - TREATMENT NONCOMPLIANCE [None]
  - URINARY TRACT INFECTION [None]
  - VOMITING [None]
